FAERS Safety Report 7148846-3 (Version None)
Quarter: 2010Q4

REPORT INFORMATION
  Report Type: 
  Country: None (occurrence: None)
  Receive Date: 20101124
  Receipt Date: 20101115
  Transmission Date: 20110411
  Serious: Yes (Hospitalization)
  Sender: FDA-Public Use
  Company Number: UTC-002395

PATIENT
  Sex: Female
  Weight: 47.6 kg

DRUGS (5)
  1. TYVASO [Suspect]
     Dosage: 216 MCG (54, 4 IN 1 D), INHALATION
     Route: 055
     Dates: start: 20101004
  2. COUMADIN [Concomitant]
  3. REVATIO [Concomitant]
  4. TRACLEER [Concomitant]
  5. DIURETICS [Concomitant]

REACTIONS (3)
  - CHEST PAIN [None]
  - ELECTROCARDIOGRAM ABNORMAL [None]
  - LABORATORY TEST ABNORMAL [None]
